FAERS Safety Report 10047695 (Version 2)
Quarter: 2014Q2

REPORT INFORMATION
  Report Type: Spontaneous
  Country: CH (occurrence: CH)
  Receive Date: 20140331
  Receipt Date: 20140424
  Transmission Date: 20141212
  Serious: Yes (Death, Hospitalization)
  Sender: FDA-Public Use
  Company Number: CH-INCYTE CORPORATION-2014IN000786

PATIENT
  Age: 56 Year
  Sex: Female

DRUGS (2)
  1. JAKAVI [Suspect]
     Indication: POLYCYTHAEMIA VERA
     Dosage: 15 MG, DAILY
     Route: 048
     Dates: start: 20140205
  2. JAKAVI [Suspect]
     Indication: OFF LABEL USE

REACTIONS (10)
  - Multi-organ failure [Fatal]
  - Sepsis [Fatal]
  - Endocarditis [Fatal]
  - Cardiac failure acute [Fatal]
  - Acute hepatic failure [Fatal]
  - Hepatotoxicity [Unknown]
  - Blood bilirubin increased [Not Recovered/Not Resolved]
  - Alanine aminotransferase increased [Not Recovered/Not Resolved]
  - Aspartate aminotransferase increased [Not Recovered/Not Resolved]
  - Thrombocytopenia [Not Recovered/Not Resolved]
